FAERS Safety Report 9976479 (Version 1)
Quarter: 2014Q1

REPORT INFORMATION
  Report Type: Report from Study
  Country: US (occurrence: US)
  Receive Date: 20140306
  Receipt Date: 20140306
  Transmission Date: 20141002
  Serious: No
  Sender: FDA-Public Use
  Company Number: US-ABBVIE-13P-163-1165557-00

PATIENT
  Sex: Female

DRUGS (11)
  1. HUMIRA [Suspect]
     Indication: PSORIASIS
     Dates: start: 2010
  2. HUMIRA [Suspect]
  3. DOVONEX [Concomitant]
     Indication: PSORIASIS
     Route: 061
  4. CLOBETASOL PROPIONATE [Concomitant]
     Indication: PSORIASIS
     Route: 061
  5. VASOLINE [Concomitant]
     Indication: PSORIASIS
     Route: 061
  6. DOVONEX [Concomitant]
     Indication: PSORIASIS
     Route: 061
  7. METFORMIN [Concomitant]
     Indication: DIABETES MELLITUS
  8. GLIPIZIDE [Concomitant]
     Indication: DIABETES MELLITUS
     Dosage: 5 PILLS DAILY
  9. SIMVASTATIN [Concomitant]
     Indication: BLOOD CHOLESTEROL INCREASED
     Dosage: 10MG DAILY
  10. LISINOPRIL [Concomitant]
     Indication: HYPERTENSION
  11. LOMOTIL [Concomitant]
     Indication: DIABETES MELLITUS
     Dosage: 8 DAILY

REACTIONS (2)
  - Psoriasis [Not Recovered/Not Resolved]
  - Drug ineffective [Not Recovered/Not Resolved]
